FAERS Safety Report 9055390 (Version 1)
Quarter: 2013Q1

REPORT INFORMATION
  Report Type: Other
  Country: GB (occurrence: GB)
  Receive Date: 20130206
  Receipt Date: 20130206
  Transmission Date: 20140127
  Serious: Yes (Other)
  Sender: FDA-Public Use
  Company Number: GB-WATSON-2013-01754

PATIENT
  Age: 63 Year
  Sex: Female
  Weight: 62 kg

DRUGS (3)
  1. OMEPRAZOLE (UNKNOWN) [Suspect]
     Indication: GASTRIC ULCER
     Dosage: 40MG
     Route: 048
     Dates: start: 20110601, end: 20110615
  2. BENDROFLUAZIDE [Concomitant]
     Indication: PRODUCT USED FOR UNKNOWN INDICATION
     Dosage: UNKNOWN
     Route: 065
  3. LISINOPRIL [Concomitant]
     Indication: PRODUCT USED FOR UNKNOWN INDICATION
     Dosage: UNKNOWN
     Route: 065

REACTIONS (1)
  - Ageusia [Recovered/Resolved]
